FAERS Safety Report 21967486 (Version 1)
Quarter: 2023Q1

REPORT INFORMATION
  Report Type: Spontaneous
  Country: HR (occurrence: HR)
  Receive Date: 20230208
  Receipt Date: 20230208
  Transmission Date: 20230417
  Serious: Yes (Other)
  Sender: FDA-Public Use
  Company Number: None

PATIENT
  Age: 32 Year
  Sex: Female
  Weight: 75 kg

DRUGS (4)
  1. FLUMAZENIL [Suspect]
     Active Substance: FLUMAZENIL
     Indication: Product used for unknown indication
     Dosage: UNK UNK, QD
     Route: 042
     Dates: start: 20221213, end: 20221213
  2. ALPRAZOLAM [Suspect]
     Active Substance: ALPRAZOLAM
     Indication: Completed suicide
     Dosage: 1.25 MG, QD (5 X 0.25 MG) (IN 1 DAY) (ROUTE OF EXPOSURE: INGESTION)
     Route: 048
     Dates: start: 20221213, end: 20221213
  3. FEVARIN [Suspect]
     Active Substance: FLUVOXAMINE MALEATE
     Indication: Completed suicide
     Dosage: 800 MG, QD (8 X 100 MG) (IN 1 DAY) (ROUTE OF EXPOSURE: INGESTION)
     Route: 048
     Dates: start: 20221213, end: 20221213
  4. ALCOHOL [Suspect]
     Active Substance: ALCOHOL
     Indication: Completed suicide
     Dosage: 30 ML (PELINKOVAC) (3 X 10 ML) (3 EMPTY BOTTLES) (ROUTE OF EXPOSURE: INGESTION)
     Route: 065
     Dates: start: 20221213, end: 20221213

REACTIONS (3)
  - Crying [Unknown]
  - Hypothermia [Unknown]
  - Imperception [Unknown]

NARRATIVE: CASE EVENT DATE: 20221213
